FAERS Safety Report 9324152 (Version 3)
Quarter: 2013Q2

REPORT INFORMATION
  Report Type: Spontaneous
  Country: US (occurrence: US)
  Receive Date: 20130603
  Receipt Date: 20130618
  Transmission Date: 20140414
  Serious: Yes (Death)
  Sender: FDA-Public Use
  Company Number: US-PFIZER INC-2013095532

PATIENT
  Age: 54 Year
  Sex: Female

DRUGS (4)
  1. PROTONIX [Suspect]
     Dosage: 40 MG, ONCE A DAY
  2. LYRICA [Suspect]
     Dosage: 75 MG, TWICE DAILY
  3. NITROSTAT [Suspect]
     Dosage: UNK
  4. TESSALON PERLE [Suspect]
     Dosage: 200 MG, THREE TIMES DAILY

REACTIONS (1)
  - Death [Fatal]
